FAERS Safety Report 20483917 (Version 2)
Quarter: 2022Q1

REPORT INFORMATION
  Report Type: Spontaneous
  Country: HU (occurrence: HU)
  Receive Date: 20220217
  Receipt Date: 20220228
  Transmission Date: 20220423
  Serious: Yes (Death, Hospitalization)
  Sender: FDA-Public Use
  Company Number: HU-RECORDATI-2022000548

PATIENT

DRUGS (1)
  1. CARBAGLU [Suspect]
     Active Substance: CARGLUMIC ACID
     Indication: Product used for unknown indication
     Dosage: 200 MILLIGRAM
     Dates: start: 202112, end: 202201

REACTIONS (2)
  - Cardiac death [Fatal]
  - Constipation [Unknown]

NARRATIVE: CASE EVENT DATE: 20220101
